FAERS Safety Report 24591664 (Version 2)
Quarter: 2024Q4

REPORT INFORMATION
  Report Type: Spontaneous
  Country: JP (occurrence: JP)
  Receive Date: 20241108
  Receipt Date: 20241119
  Transmission Date: 20250115
  Serious: Yes (Other)
  Sender: UCB
  Company Number: JP-UCBJ-CD202410660UCBPHAPROD

PATIENT
  Age: 63 Year
  Sex: Female
  Weight: 76.9 kg

DRUGS (7)
  1. LEVETIRACETAM [Interacting]
     Active Substance: LEVETIRACETAM
     Indication: Seizure
     Dosage: 150 MILLIGRAM, ONCE DAILY (QD)
     Route: 048
  2. LAMOTRIGINE [Interacting]
     Active Substance: LAMOTRIGINE
     Indication: Seizure
     Dosage: 3000 MILLIGRAM, ONCE DAILY (QD)
  3. OLANZAPINE [Interacting]
     Active Substance: OLANZAPINE
     Indication: Prophylaxis of nausea and vomiting
     Dosage: UNK
  4. APREPITANT [Interacting]
     Active Substance: APREPITANT
     Indication: Product used for unknown indication
     Dosage: UNK
  5. PALONOSETRON [Interacting]
     Active Substance: PALONOSETRON
     Indication: Product used for unknown indication
     Dosage: UNK
  6. CISPLATIN [Concomitant]
     Active Substance: CISPLATIN
     Indication: Paraneoplastic neurological syndrome
     Dosage: UNK
  7. ETOPOSIDE [Concomitant]
     Active Substance: ETOPOSIDE
     Indication: Paraneoplastic neurological syndrome
     Dosage: UNK

REACTIONS (4)
  - Seizure [Recovered/Resolved]
  - Prescribed underdose [Unknown]
  - Off label use [Unknown]
  - Drug interaction [Unknown]
